FAERS Safety Report 24607346 (Version 1)
Quarter: 2024Q4

REPORT INFORMATION
  Report Type: Spontaneous
  Country: AU (occurrence: AU)
  Receive Date: 20241112
  Receipt Date: 20241112
  Transmission Date: 20250114
  Serious: Yes (Life-Threatening, Hospitalization)
  Sender: STRIDES
  Company Number: AU-STRIDES ARCOLAB LIMITED-2024SP014484

PATIENT
  Age: 5 Decade
  Sex: Female

DRUGS (3)
  1. LIDOCAINE [Suspect]
     Active Substance: LIDOCAINE
     Indication: Anaesthesia procedure
     Dosage: UNK
     Route: 065
  2. REMIFENTANIL [Suspect]
     Active Substance: REMIFENTANIL
     Indication: Anaesthesia procedure
     Dosage: 0.1 MILLIGRAM/KILOGRAM/MIN
     Route: 042
  3. REMIFENTANIL [Suspect]
     Active Substance: REMIFENTANIL
     Dosage: 0.15 MILLIGRAM/KILOGRAM/MIN
     Route: 042

REACTIONS (5)
  - Hypoventilation [Recovered/Resolved]
  - Hypercapnia [Recovered/Resolved]
  - Unresponsive to stimuli [Recovered/Resolved]
  - Hypertonia [Recovered/Resolved]
  - Dystonia [Recovered/Resolved]
